FAERS Safety Report 8060017-5 (Version None)
Quarter: 2012Q1

REPORT INFORMATION
  Report Type: 
  Country: None (occurrence: None)
  Receive Date: 20120120
  Receipt Date: 20120112
  Transmission Date: 20120608
  Serious: Yes (Hospitalization)
  Sender: FDA-Public Use
  Company Number: PHHY2012US003044

PATIENT
  Age: 33 Year
  Sex: Male

DRUGS (2)
  1. ANESTHETICS, GENERAL [Concomitant]
  2. CEFAZOLIN [Suspect]

REACTIONS (5)
  - CARDIAC ARREST [None]
  - MYOCARDIAL ISCHAEMIA [None]
  - HYPOXIA [None]
  - BLOOD PRESSURE DECREASED [None]
  - ANAPHYLACTIC REACTION [None]
